FAERS Safety Report 23189542 (Version 1)
Quarter: 2023Q4

REPORT INFORMATION
  Report Type: Spontaneous
  Country: US (occurrence: US)
  Receive Date: 20231116
  Receipt Date: 20231116
  Transmission Date: 20240110
  Serious: Yes (Other)
  Sender: FDA-Public Use
  Company Number: US-BRISTOL-MYERS SQUIBB COMPANY-2023-164267

PATIENT

DRUGS (2)
  1. BELATACEPT [Suspect]
     Active Substance: BELATACEPT
     Indication: Renal transplant
  2. BELATACEPT [Suspect]
     Active Substance: BELATACEPT

REACTIONS (2)
  - Cytomegalovirus infection [Unknown]
  - Polyomavirus viraemia [Unknown]
